FAERS Safety Report 12623296 (Version 2)
Quarter: 2016Q3

REPORT INFORMATION
  Report Type: Spontaneous
  Country: US (occurrence: US)
  Receive Date: 20160804
  Receipt Date: 20160824
  Transmission Date: 20161109
  Serious: Yes (Other)
  Sender: FDA-Public Use
  Company Number: US-BAYER-2016-150837

PATIENT
  Age: 42 Year
  Sex: Male
  Weight: 133.79 kg

DRUGS (2)
  1. GADAVIST [Suspect]
     Active Substance: GADOBUTROL
     Indication: NUCLEAR MAGNETIC RESONANCE IMAGING BRAIN
     Dosage: 10 ML, ONCE
     Route: 042
     Dates: start: 20160731, end: 20160731
  2. GADAVIST [Suspect]
     Active Substance: GADOBUTROL
     Indication: WHITE MATTER LESION

REACTIONS (4)
  - Nausea [None]
  - Seizure [None]
  - Vomiting [None]
  - Urticaria [None]

NARRATIVE: CASE EVENT DATE: 20160731
